APPROVED DRUG PRODUCT: PROPRANOLOL HYDROCHLORIDE
Active Ingredient: PROPRANOLOL HYDROCHLORIDE
Strength: 40MG
Dosage Form/Route: TABLET;ORAL
Application: A070322 | Product #004 | TE Code: AB
Applicant: INNOGENIX LLC
Approved: Oct 22, 1985 | RLD: No | RS: No | Type: RX